FAERS Safety Report 5695835-1 (Version None)
Quarter: 2008Q2

REPORT INFORMATION
  Report Type: 
  Country: None (occurrence: None)
  Receive Date: 20080407
  Receipt Date: 20060504
  Transmission Date: 20081010
  Serious: Yes (Hospitalization)
  Sender: FDA-Public Use
  Company Number: GB-JNJFOC-20080207102

PATIENT
  Age: 67 Year

DRUGS (3)
  1. IBUPROFEN [Suspect]
     Indication: DRUG USE FOR UNKNOWN INDICATION
  2. HEPARIN [Suspect]
     Indication: DEEP VEIN THROMBOSIS
  3. MORPHINE [Concomitant]

REACTIONS (2)
  - BARRETT'S OESOPHAGUS [None]
  - GASTROINTESTINAL HAEMORRHAGE [None]
